FAERS Safety Report 6006140-8 (Version None)
Quarter: 2008Q4

REPORT INFORMATION
  Report Type: 
  Country: None (occurrence: None)
  Receive Date: 20081217
  Receipt Date: 20080509
  Transmission Date: 20090506
  Serious: No
  Sender: FDA-Public Use
  Company Number: US-BAUSCH-2008BL002092

PATIENT
  Age: 90 Year
  Sex: Female

DRUGS (10)
  1. ZYLET [Suspect]
     Indication: EYE ALLERGY
     Route: 047
     Dates: start: 20080424, end: 20080509
  2. ZADITOR [Suspect]
     Indication: EYE ALLERGY
     Route: 047
     Dates: start: 20080424
  3. HYDROCHLOROTHIAZIDE [Concomitant]
     Indication: HYPERTENSION
     Route: 048
     Dates: start: 20080301
  4. FEMARA [Concomitant]
     Indication: BREAST CANCER
     Route: 048
  5. TOPROL-XL [Concomitant]
     Indication: HYPERTENSION
     Route: 048
  6. SYNTHROID [Concomitant]
     Indication: THYROID DISORDER
     Route: 048
  7. FOSAMAX [Concomitant]
     Indication: OSTEOPOROSIS
     Route: 048
  8. LIPITOR [Concomitant]
     Indication: BLOOD TRIGLYCERIDES INCREASED
     Route: 048
  9. KLOR-CON [Concomitant]
     Indication: HYPOKALAEMIA
     Route: 048
  10. VITAMIN B-12 [Concomitant]
     Indication: VITAMIN SUPPLEMENTATION
     Route: 048

REACTIONS (3)
  - COUGH [None]
  - DYSPHONIA [None]
  - OEDEMA PERIPHERAL [None]
